FAERS Safety Report 18935649 (Version 2)
Quarter: 2021Q1

REPORT INFORMATION
  Report Type: Report from Study
  Country: FR (occurrence: FR)
  Receive Date: 20210224
  Receipt Date: 20210323
  Transmission Date: 20210420
  Serious: Yes (Hospitalization, Other)
  Sender: FDA-Public Use
  Company Number: FR-PFIZER INC-2021145932

PATIENT
  Age: 69 Year
  Sex: Female
  Weight: 77 kg

DRUGS (4)
  1. IDHIFA [Interacting]
     Active Substance: ENASIDENIB MESYLATE
     Indication: ACUTE MYELOID LEUKAEMIA
     Dosage: 50 MG, 1X/DAY
     Route: 048
     Dates: start: 20201125, end: 20210117
  2. IDHIFA [Interacting]
     Active Substance: ENASIDENIB MESYLATE
     Dosage: 50 MG, 1X/DAY
     Route: 048
     Dates: start: 20210126
  3. VORICONAZOLE. [Suspect]
     Active Substance: VORICONAZOLE
     Indication: BRONCHOPULMONARY ASPERGILLOSIS
     Dosage: UNK
     Route: 065
  4. IDHIFA [Interacting]
     Active Substance: ENASIDENIB MESYLATE
     Dosage: 100 MG, 1X/DAY
     Route: 048
     Dates: start: 20201125

REACTIONS (4)
  - Eastern Cooperative Oncology Group performance status worsened [Unknown]
  - Drug interaction [Recovered/Resolved]
  - Drug ineffective [Recovered/Resolved]
  - Bronchopulmonary aspergillosis [Recovered/Resolved]

NARRATIVE: CASE EVENT DATE: 20201222
